FAERS Safety Report 17594194 (Version 4)
Quarter: 2021Q1

REPORT INFORMATION
  Report Type: Spontaneous
  Country: FR (occurrence: FR)
  Receive Date: 20200327
  Receipt Date: 20210304
  Transmission Date: 20210419
  Serious: Yes (Hospitalization)
  Sender: FDA-Public Use
  Company Number: FR-GILEAD-2017-0310880

PATIENT
  Age: 11 Year
  Sex: Male

DRUGS (4)
  1. MEXILETINE [Concomitant]
     Active Substance: MEXILETINE
  2. RANOLAZINE. [Suspect]
     Active Substance: RANOLAZINE
     Dosage: 750 MG, QD
     Route: 048
     Dates: start: 20200304
  3. RANOLAZINE. [Suspect]
     Active Substance: RANOLAZINE
     Dosage: 375 MG MAINTENANCE
     Route: 048
  4. RANOLAZINE. [Suspect]
     Active Substance: RANOLAZINE
     Indication: TIMOTHY SYNDROME
     Dosage: 375 MG, QD
     Route: 048
     Dates: start: 20200302, end: 20200303

REACTIONS (1)
  - Off label use [Not Recovered/Not Resolved]

NARRATIVE: CASE EVENT DATE: 20200302
